FAERS Safety Report 11195157 (Version 1)
Quarter: 2015Q2

REPORT INFORMATION
  Report Type: Report from Study
  Country: CA (occurrence: CA)
  Receive Date: 20150617
  Receipt Date: 20150617
  Transmission Date: 20150821
  Serious: Yes (Death, Hospitalization)
  Sender: FDA-Public Use
  Company Number: CA-ROCHE-1494377

PATIENT
  Age: 60 Year
  Sex: Female
  Weight: 107 kg

DRUGS (8)
  1. RITUXAN [Suspect]
     Active Substance: RITUXIMAB
     Indication: RHEUMATOID ARTHRITIS
     Dosage: DOSE OF RITUXIMAB TAKEN ON 26/JAN/2015: 1000MG TAKEN ON DAYS 1 AND 15?LATEST RITUXIMAB INFUSION RECE
     Route: 042
     Dates: start: 201405, end: 20150211
  2. TYLENOL [Concomitant]
     Active Substance: ACETAMINOPHEN
     Indication: PREMEDICATION
     Route: 048
     Dates: start: 20150126
  3. SOLU-MEDROL [Concomitant]
     Active Substance: METHYLPREDNISOLONE SODIUM SUCCINATE
     Indication: PREMEDICATION
     Route: 042
     Dates: start: 20150126
  4. PREDNISONE. [Concomitant]
     Active Substance: PREDNISONE
     Route: 065
  5. PERINDOPRIL [Concomitant]
     Active Substance: PERINDOPRIL
  6. METHOTREXATE [Concomitant]
     Active Substance: METHOTREXATE
     Route: 058
  7. FOLIC ACID. [Concomitant]
     Active Substance: FOLIC ACID
     Route: 065
  8. BENADRYL [Concomitant]
     Active Substance: DIPHENHYDRAMINE HYDROCHLORIDE
     Indication: PREMEDICATION
     Route: 048
     Dates: start: 20150126

REACTIONS (9)
  - Peripheral swelling [Unknown]
  - Pneumonia aspiration [Unknown]
  - Herpes zoster [Recovered/Resolved]
  - Infusion related reaction [Recovered/Resolved]
  - Wound secretion [Not Recovered/Not Resolved]
  - Wheezing [Unknown]
  - Dyspnoea [Unknown]
  - Weight increased [Unknown]
  - Death [Fatal]

NARRATIVE: CASE EVENT DATE: 20150126
